FAERS Safety Report 8999216 (Version 1)
Quarter: 2013Q1

REPORT INFORMATION
  Report Type: Spontaneous
  Country: ES (occurrence: ES)
  Receive Date: 20130103
  Receipt Date: 20130103
  Transmission Date: 20140127
  Serious: Yes (Hospitalization)
  Sender: FDA-Public Use
  Company Number: ES-VERTEX PHARMACEUTICALS INC.-2013-000059

PATIENT
  Sex: Female

DRUGS (4)
  1. INCIVO [Suspect]
     Indication: HEPATITIS
     Dosage: 750 MG, TID
     Route: 048
     Dates: start: 20121004
  2. COPEGUS [Suspect]
     Indication: HEPATITIS
     Dosage: 600 MG, BID
     Route: 065
     Dates: start: 20121004
  3. PEGINTERFERON ALFA [Suspect]
     Indication: HEPATITIS
     Dosage: 180 ?G, QW
     Route: 065
     Dates: start: 20121004
  4. ZARZIO [Suspect]
     Indication: PRODUCT USED FOR UNKNOWN INDICATION
     Dosage: 30 MG, QW
     Route: 065
     Dates: start: 20121129

REACTIONS (1)
  - Cellulitis [Unknown]
